FAERS Safety Report 7171274-1 (Version None)
Quarter: 2010Q4

REPORT INFORMATION
  Report Type: 
  Country: None (occurrence: None)
  Receive Date: 20101217
  Receipt Date: 20101208
  Transmission Date: 20110411
  Serious: Yes (Hospitalization, Other)
  Sender: FDA-Public Use
  Company Number: US-ELI_LILLY_AND_COMPANY-US201002003426

PATIENT
  Sex: Male
  Weight: 131.7 kg

DRUGS (8)
  1. BYETTA [Suspect]
     Dosage: UNK, UNKNOWN
     Route: 065
     Dates: start: 20080101, end: 20090301
  2. BYETTA [Suspect]
     Dosage: 10 UG, 2/D
     Route: 058
     Dates: start: 20081007, end: 20090325
  3. AVANDAMET [Concomitant]
     Indication: DIABETES MELLITUS
     Dosage: UNK, 2/D
     Dates: start: 20081007, end: 20090325
  4. TRICOR [Concomitant]
     Indication: HYPERLIPIDAEMIA
     Dosage: 145 MG, DAILY (1/D)
     Dates: start: 20050713
  5. TYLENOL (CAPLET) [Concomitant]
     Indication: HEADACHE
     Dates: start: 20000101
  6. BENAZEPRIL [Concomitant]
     Dosage: 40 MG, DAILY (1/D)
  7. HYDROCHLOROTHIAZIDE [Concomitant]
     Dosage: 12.5 MG, DAILY (1/D)
  8. DILTIAZEM [Concomitant]
     Dosage: 120 MG, DAILY (1/D)

REACTIONS (2)
  - PANCREATITIS CHRONIC [None]
  - PANCREATITIS NECROTISING [None]
